FAERS Safety Report 19013805 (Version 1)
Quarter: 2021Q1

REPORT INFORMATION
  Report Type: Spontaneous
  Country: ES (occurrence: ES)
  Receive Date: 20210316
  Receipt Date: 20210316
  Transmission Date: 20210420
  Serious: Yes (Other)
  Sender: FDA-Public Use
  Company Number: ES-CURIUM-200900507

PATIENT
  Age: 22 Year
  Sex: Female

DRUGS (9)
  1. TETRAZEPAM [Concomitant]
     Active Substance: TETRAZEPAM
  2. ALMAGATE [Concomitant]
     Active Substance: ALMAGATE
  3. SODIUM PERTECHNETATE TC 99M [Interacting]
     Active Substance: TECHNETIUM TC-99M SODIUM PERTECHNETATE
     Indication: BONE SCAN
     Dosage: 22 MCI, SINGLE??NUMBER OF SEPARATE DOSAGES: 1
     Route: 042
     Dates: start: 20040311, end: 20040311
  4. CAPTOPRIL. [Concomitant]
     Active Substance: CAPTOPRIL
  5. OMEPRAZOL                          /00661201/ [Concomitant]
     Active Substance: OMEPRAZOLE
  6. DIOSMIN W/HESPERIDIN [Concomitant]
     Active Substance: DIOSMIN\HESPERIDIN
  7. TECHNESCAN HDP [Suspect]
     Active Substance: TECHNETIUM TC-99M OXIDRONATE
     Indication: BONE SCAN
     Dosage: UNK
     Route: 042
     Dates: start: 20040311, end: 20040311
  8. METHOTREXATE. [Interacting]
     Active Substance: METHOTREXATE
  9. DEFLAZACORT [Concomitant]
     Active Substance: DEFLAZACORT

REACTIONS (2)
  - Bone scan abnormal [Recovered/Resolved]
  - Drug interaction [Recovered/Resolved]

NARRATIVE: CASE EVENT DATE: 20040311
